FAERS Safety Report 10167499 (Version 2)
Quarter: 2014Q2

REPORT INFORMATION
  Report Type: Spontaneous
  Country: AT (occurrence: AT)
  Receive Date: 20140512
  Receipt Date: 20140512
  Transmission Date: 20141212
  Serious: Yes (Other)
  Sender: FDA-Public Use
  Company Number: AT-009507513-1404AUT009242

PATIENT
  Age: 20 Year
  Sex: Female

DRUGS (3)
  1. NUVARING [Suspect]
     Indication: CONTRACEPTION
     Dosage: UNK
     Route: 067
     Dates: start: 20140309, end: 20140330
  2. NUVARING [Suspect]
     Dosage: UNK
     Route: 067
     Dates: start: 20140209, end: 20140302
  3. NUVARING [Suspect]
     Dosage: UNK
     Route: 067
     Dates: start: 20130612

REACTIONS (2)
  - Abortion induced [Recovered/Resolved]
  - Unintended pregnancy [Recovered/Resolved]
